FAERS Safety Report 16484979 (Version 1)
Quarter: 2019Q2

REPORT INFORMATION
  Report Type: Spontaneous
  Country: US (occurrence: US)
  Receive Date: 20190516
  Receipt Date: 20190516
  Transmission Date: 20190711
  Serious: Yes (Hospitalization)
  Sender: FDA-Public Use
  Company Number: None

PATIENT
  Sex: Female
  Weight: 69.9 kg

DRUGS (1)
  1. ASPIRIN. [Suspect]
     Active Substance: ASPIRIN
     Dates: end: 20190403

REACTIONS (3)
  - Respiratory syncytial virus test positive [None]
  - Metastatic bronchial carcinoma [None]
  - Pneumonia [None]

NARRATIVE: CASE EVENT DATE: 20190408
